FAERS Safety Report 23683994 (Version 1)
Quarter: 2024Q1

REPORT INFORMATION
  Report Type: Spontaneous
  Country: AU (occurrence: AU)
  Receive Date: 20240328
  Receipt Date: 20240328
  Transmission Date: 20240410
  Serious: Yes (Hospitalization)
  Sender: FDA-Public Use
  Company Number: AU-WOODWARD-2024-AU-000188

PATIENT
  Sex: Male

DRUGS (9)
  1. RABEPRAZOLE SODIUM [Suspect]
     Active Substance: RABEPRAZOLE SODIUM
     Indication: Product used for unknown indication
     Dosage: 1.0 DOSAGE FORM (1 DOSAGE FORM, 1 IN 1 DAY); 1 TABLET IN THE MORNING
     Route: 048
  2. ALLOPURINOL [Suspect]
     Active Substance: ALLOPURINOL
     Dosage: 200.0 MILLIGRAM(S) (100 MILLIGRAM(S), 2 IN 1 DAY); 300.0 MILLIGRAM(S) (300 MILLIGRAM(S), 1 IN 1 DAY)
     Route: 048
  3. ATORVASTATIN [Suspect]
     Active Substance: ATORVASTATIN
     Dosage: 20.0 MILLIGRAM(S) (20 MILLIGRAM(S), 1 IN 1 DAY), 1 TABLET IN THE MORNING
     Route: 048
  4. ROSUVASTATIN [Suspect]
     Active Substance: ROSUVASTATIN
     Dosage: DOSE AND FREQUENCY UNKNOWN
  5. OLANZAPINE [Suspect]
     Active Substance: OLANZAPINE
     Dosage: 5.0 MILLIGRAM(S) (5 MILLIGRAM(S), 1 IN 1 DAY); 25.0 MILLIGRAM(S) (25 MILLIGRAM(S), 1 IN 1 DAY); 5.0
     Route: 048
  6. VALPROATE [Suspect]
     Active Substance: VALPROIC ACID
     Dosage: 2400 MILLIGRAM(S) (1200 MILLIGRAM(S), 2 IN 1 DAY)
     Route: 048
  7. ASPIRIN [Suspect]
     Active Substance: ASPIRIN
     Dosage: 100.0 MILLIGRAM(S) (100 MILLIGRAM(S), 1 IN 1 DAY)
     Route: 048
  8. ESCITALOPRAM [Suspect]
     Active Substance: ESCITALOPRAM OXALATE
     Dosage: 20.0 MILLIGRAM(S) (20 MILLIGRAM(S), 1 IN 1 DAY) IN THE MORNING
  9. LEVOTHYROXINE [Suspect]
     Active Substance: LEVOTHYROXINE\LEVOTHYROXINE SODIUM
     Dosage: 0.1 MILLIGRAM(S) (0.1 MILLIGRAM(S), 1 IN 1 DAY); 0.005 MILLIGRAM(S) (0.075 MILLIGRAM(S), 1 IN 2 WEEK
     Route: 048

REACTIONS (5)
  - Anxiety [Unknown]
  - Leukocyte adhesion deficiency type I [Unknown]
  - Stenosis [Unknown]
  - Thrombocytopenia [Unknown]
  - Troponin increased [Not Recovered/Not Resolved]
